FAERS Safety Report 10356506 (Version 1)
Quarter: 2014Q3

REPORT INFORMATION
  Report Type: Spontaneous
  Country: US (occurrence: None)
  Receive Date: 20140730
  Receipt Date: 20140730
  Transmission Date: 20150326
  Serious: Yes (Hospitalization)
  Sender: FDA-Public Use
  Company Number: None

PATIENT
  Age: 64 Year
  Sex: Male
  Weight: 112.4 kg

DRUGS (1)
  1. SIMVASTATIN. [Suspect]
     Active Substance: SIMVASTATIN
     Indication: HYPERLIPIDAEMIA
     Route: 048
     Dates: start: 20100217, end: 20140210

REACTIONS (4)
  - Cardiorenal syndrome [None]
  - Myoglobin blood increased [None]
  - Blood creatine phosphokinase increased [None]
  - Renal failure acute [None]

NARRATIVE: CASE EVENT DATE: 20140210
